FAERS Safety Report 10052419 (Version 1)
Quarter: 2014Q2

REPORT INFORMATION
  Report Type: Spontaneous
  Country: US (occurrence: None)
  Receive Date: 20140401
  Receipt Date: 20140401
  Transmission Date: 20141212
  Serious: Yes (Other)
  Sender: FDA-Public Use
  Company Number: None

PATIENT
  Age: 53 Year
  Sex: Female
  Weight: 68.95 kg

DRUGS (9)
  1. EFFEXOR-XR [Suspect]
     Indication: GENERALISED ANXIETY DISORDER
     Dosage: 1 CAPSULE
     Route: 048
     Dates: start: 20140321, end: 20140331
  2. EFFEXOR-XR [Suspect]
     Indication: DEPRESSED MOOD
     Dosage: 1 CAPSULE
     Route: 048
     Dates: start: 20140321, end: 20140331
  3. VENLAFAXINE [Concomitant]
  4. NASONEX [Concomitant]
  5. SINGULAIR [Concomitant]
  6. CENTRUM FLAVOR-BURST MULTIVITAMIN/MULTIMINERAL SUPPLEMENT [Concomitant]
  7. NUTRICOLOGY OX BILE [Concomitant]
  8. MELATONIN [Concomitant]
  9. TYLENOL [Concomitant]

REACTIONS (8)
  - Anxiety [None]
  - Irritability [None]
  - Headache [None]
  - Upper-airway cough syndrome [None]
  - Oropharyngeal pain [None]
  - Product substitution issue [None]
  - Drug effect decreased [None]
  - Depressed mood [None]
